FAERS Safety Report 9569045 (Version 2)
Quarter: 2013Q3

REPORT INFORMATION
  Report Type: Spontaneous
  Country: US (occurrence: US)
  Receive Date: 20130930
  Receipt Date: 20130930
  Transmission Date: 20140515
  Serious: No
  Sender: FDA-Public Use
  Company Number: US-AMGEN-USASP2013033470

PATIENT
  Age: 54 Year
  Sex: Male
  Weight: 82.54 kg

DRUGS (4)
  1. ENBREL [Suspect]
     Indication: PSORIATIC ARTHROPATHY
     Dosage: 50 MG, QWK
     Route: 058
     Dates: start: 20130328, end: 20130809
  2. LORTAB                             /00607101/ [Concomitant]
     Dosage: UNK
  3. LIDODERM [Concomitant]
     Dosage: 5 %, UNK
  4. SUDAFED                            /00076302/ [Concomitant]
     Dosage: 10 MG, UNK

REACTIONS (4)
  - Headache [Not Recovered/Not Resolved]
  - Facial pain [Recovered/Resolved]
  - Respiratory tract congestion [Recovered/Resolved]
  - Sinusitis [Recovered/Resolved]
